FAERS Safety Report 8197549-5 (Version None)
Quarter: 2012Q1

REPORT INFORMATION
  Report Type: 
  Country: None (occurrence: None)
  Receive Date: 20120309
  Receipt Date: 20120228
  Transmission Date: 20120608
  Serious: Yes (Hospitalization)
  Sender: FDA-Public Use
  Company Number: FR-ROCHE-1044307

PATIENT
  Age: 70 Year
  Sex: Female

DRUGS (1)
  1. XELODA [Suspect]
     Indication: RECTAL CANCER
     Route: 048
     Dates: start: 20120103, end: 20120117

REACTIONS (8)
  - HAEMOLYSIS [None]
  - COAGULATION FACTOR DECREASED [None]
  - DIARRHOEA [None]
  - STOMATITIS [None]
  - HYPERAMMONAEMIA [None]
  - PALMAR-PLANTAR ERYTHRODYSAESTHESIA SYNDROME [None]
  - BONE MARROW FAILURE [None]
  - PROTHROMBIN LEVEL DECREASED [None]
